FAERS Safety Report 22295916 (Version 1)
Quarter: 2023Q2

REPORT INFORMATION
  Report Type: Spontaneous
  Country: US (occurrence: None)
  Receive Date: 20230507
  Receipt Date: 20230507
  Transmission Date: 20230722
  Serious: Yes (Other)
  Sender: FDA-Public Use
  Company Number: None

PATIENT
  Age: 61 Year
  Sex: Female
  Weight: 51.75 kg

DRUGS (6)
  1. BETAMETHASONE DIPROPIONATE\MINOXIDIL [Suspect]
     Active Substance: BETAMETHASONE DIPROPIONATE\MINOXIDIL
     Indication: Alopecia
     Dosage: FREQUENCY : DAILY;?
     Route: 061
     Dates: start: 20230421, end: 20230422
  2. GABAPENTIN [Concomitant]
     Active Substance: GABAPENTIN
  3. SPIRONOLACTONE [Concomitant]
     Active Substance: SPIRONOLACTONE
  4. FINASTERIDE [Concomitant]
     Active Substance: FINASTERIDE
  5. ONE-A-DAY NOS [Concomitant]
     Active Substance: MINERALS\VITAMINS
  6. NUTRAFOL [Concomitant]

REACTIONS (3)
  - Pain of skin [None]
  - Facial pain [None]
  - Application site pain [None]

NARRATIVE: CASE EVENT DATE: 20230421
